FAERS Safety Report 10068178 (Version 1)
Quarter: 2014Q2

REPORT INFORMATION
  Report Type: Spontaneous
  Country: US (occurrence: US)
  Receive Date: 20140409
  Receipt Date: 20140409
  Transmission Date: 20141212
  Serious: No
  Sender: FDA-Public Use
  Company Number: US-PFIZER INC-2014096937

PATIENT
  Age: 47 Year
  Sex: Female
  Weight: 72.56 kg

DRUGS (1)
  1. ADVIL MIGRAINE [Suspect]
     Indication: HEADACHE
     Dosage: 400 MG (2X200MG) DAILY
     Route: 048

REACTIONS (1)
  - Drug ineffective [Unknown]
